FAERS Safety Report 11649276 (Version 3)
Quarter: 2015Q4

REPORT INFORMATION
  Report Type: Report from Study
  Country: US (occurrence: US)
  Receive Date: 20151021
  Receipt Date: 20151211
  Transmission Date: 20160304
  Serious: Yes (Hospitalization, Other)
  Sender: FDA-Public Use
  Company Number: US-GILEAD-2015-0176576

PATIENT
  Age: 27 Year
  Sex: Female

DRUGS (4)
  1. ADCIRCA [Concomitant]
     Active Substance: TADALAFIL
  2. ORENITRAM [Concomitant]
     Active Substance: TREPROSTINIL
  3. AMBRISENTAN [Suspect]
     Active Substance: AMBRISENTAN
     Indication: PULMONARY ARTERIAL HYPERTENSION
     Dosage: 10 MG, QD
     Route: 065
     Dates: start: 20130108
  4. REMODULIN [Concomitant]
     Active Substance: TREPROSTINIL
     Route: 058

REACTIONS (7)
  - Infection [Recovered/Resolved]
  - Headache [Unknown]
  - Influenza [Unknown]
  - Chest discomfort [Unknown]
  - Fluid retention [Unknown]
  - Pain in jaw [Unknown]
  - Pulmonary arterial hypertension [Unknown]
